FAERS Safety Report 10066384 (Version 1)
Quarter: 2014Q2

REPORT INFORMATION
  Report Type: Spontaneous
  Country: AT (occurrence: AT)
  Receive Date: 20140408
  Receipt Date: 20140408
  Transmission Date: 20141212
  Serious: Yes (Hospitalization)
  Sender: FDA-Public Use
  Company Number: AT-WATSON-2013-24582

PATIENT
  Age: 68 Year
  Sex: Female

DRUGS (3)
  1. RAMIPRIL (UNKNOWN) [Suspect]
     Indication: HYPERTENSION
     Route: 065
     Dates: end: 20130510
  2. ALPRAZOLAM (UNKNOWN) [Suspect]
     Indication: INSOMNIA
     Route: 065
     Dates: start: 20130401, end: 20130510
  3. SORTIS [Suspect]
     Indication: HYPERTRIGLYCERIDAEMIA
     Route: 065
     Dates: start: 20130401, end: 20130510

REACTIONS (1)
  - Rash maculo-papular [Recovered/Resolved]
